FAERS Safety Report 21938167 (Version 1)
Quarter: 2023Q1

REPORT INFORMATION
  Report Type: Report from Study
  Country: US (occurrence: US)
  Receive Date: 20230201
  Receipt Date: 20230201
  Transmission Date: 20230418
  Serious: No
  Sender: FDA-Public Use
  Company Number: US-INCYTE CORPORATION-2021IN011524

PATIENT

DRUGS (1)
  1. PEMIGATINIB [Suspect]
     Active Substance: PEMIGATINIB
     Indication: Bile duct cancer
     Dosage: 13.5 MILLIGRAM DAILY 14 DAYS ON, THEN 7 DAYS OFF
     Route: 048
     Dates: start: 202106

REACTIONS (6)
  - Upper-airway cough syndrome [Unknown]
  - Cough [Unknown]
  - Oropharyngeal pain [Unknown]
  - Dry mouth [Unknown]
  - Onychomadesis [Unknown]
  - Alopecia [Unknown]
